FAERS Safety Report 16263680 (Version 1)
Quarter: 2019Q2

REPORT INFORMATION
  Report Type: Spontaneous
  Country: US (occurrence: US)
  Receive Date: 20190327
  Receipt Date: 20190327
  Transmission Date: 20190711
  Serious: No
  Sender: FDA-Public Use
  Company Number: None

PATIENT
  Age: 67 Year
  Sex: Female
  Weight: 76.2 kg

DRUGS (6)
  1. NAPROXEN. [Concomitant]
     Active Substance: NAPROXEN
  2. VITAMIN D3 [Concomitant]
     Active Substance: CHOLECALCIFEROL
  3. HUMALOG MIX75/25 KWIKPEN [Suspect]
     Active Substance: INSULIN LISPRO
     Dosage: ?          QUANTITY:25 IU INTERNATIONAL UNIT(S);?
     Dates: start: 201702, end: 20190312
  4. HUMALOG MIX75/25 KWIKPEN [Suspect]
     Active Substance: INSULIN LISPRO
     Indication: TYPE 2 DIABETES MELLITUS
     Dosage: 75 INSULIN LISPRO PROTAMINE SUSPENSION 25 - SAME ?25 UNITS - MORNING  20 UNITS - EVENING INJECTION IN SKIN
     Dates: start: 201702, end: 20190312
  5. METFORMIN [Concomitant]
     Active Substance: METFORMIN HYDROCHLORIDE
  6. CLONIDINE TAB [Concomitant]

REACTIONS (6)
  - Myalgia [None]
  - Asthenia [None]
  - Arthralgia [None]
  - Swelling [None]
  - Joint lock [None]
  - Muscle spasms [None]

NARRATIVE: CASE EVENT DATE: 2017
